FAERS Safety Report 11526028 (Version 2)
Quarter: 2015Q4

REPORT INFORMATION
  Report Type: Report from Study
  Country: BR (occurrence: BR)
  Receive Date: 20150918
  Receipt Date: 20151005
  Transmission Date: 20160304
  Serious: Yes (Hospitalization)
  Sender: FDA-Public Use
  Company Number: PHHY2015BR111617

PATIENT
  Sex: Male
  Weight: 37 kg

DRUGS (4)
  1. ALENIA                             /01538101/ [Concomitant]
     Active Substance: BUDESONIDE\FORMOTEROL FUMARATE
     Indication: ASTHMA
     Dosage: (2+400 MG)
     Route: 065
  2. CIPROFLOXACINO 500MG [Concomitant]
     Indication: CYSTIC FIBROSIS
     Dosage: 2 DF, QD
     Route: 048
  3. TOBI [Suspect]
     Active Substance: TOBRAMYCIN
     Indication: CYSTIC FIBROSIS
     Dosage: UNK, BID
     Route: 055
  4. TOBI [Suspect]
     Active Substance: TOBRAMYCIN
     Dosage: UNK, QD
     Route: 055

REACTIONS (10)
  - Discomfort [Recovering/Resolving]
  - Dyspnoea [Recovering/Resolving]
  - Bronchial obstruction [Recovering/Resolving]
  - Pyrexia [Not Recovered/Not Resolved]
  - Lung infection [Recovering/Resolving]
  - Fatigue [Recovering/Resolving]
  - Cough [Recovering/Resolving]
  - Bronchospasm [Recovering/Resolving]
  - Asphyxia [Recovering/Resolving]
  - Secretion discharge [Not Recovered/Not Resolved]
